FAERS Safety Report 12526692 (Version 1)
Quarter: 2016Q3

REPORT INFORMATION
  Report Type: Spontaneous
  Country: DE (occurrence: DE)
  Receive Date: 20160705
  Receipt Date: 20160705
  Transmission Date: 20161109
  Serious: Yes (Other)
  Sender: FDA-Public Use
  Company Number: DE-SUN PHARMACEUTICAL INDUSTRIES LTD-2016RR-119605

PATIENT
  Age: 24 Year
  Sex: Female
  Weight: 74 kg

DRUGS (1)
  1. CIPROFLOXACIN. [Suspect]
     Active Substance: CIPROFLOXACIN
     Indication: SINUSITIS
     Dosage: 250 MG, TID
     Route: 048
     Dates: start: 20160315

REACTIONS (15)
  - Anxiety [Unknown]
  - Arthralgia [Recovered/Resolved]
  - Myalgia [Unknown]
  - Palpitations [Recovered/Resolved]
  - Tremor [Not Recovered/Not Resolved]
  - Depression [Recovered/Resolved]
  - Muscular weakness [Recovered/Resolved]
  - Asthenia [Recovered/Resolved]
  - Tendon pain [Unknown]
  - Disturbance in attention [Recovered/Resolved]
  - Heart rate increased [Unknown]
  - Cyanosis [Recovered/Resolved]
  - Muscle spasms [Unknown]
  - Suicidal ideation [Recovered/Resolved]
  - Dizziness [Recovered/Resolved]

NARRATIVE: CASE EVENT DATE: 2016
